FAERS Safety Report 9508540 (Version 1)
Quarter: 2013Q3

REPORT INFORMATION
  Report Type: Spontaneous
  Country: BR (occurrence: BR)
  Receive Date: 20130909
  Receipt Date: 20130909
  Transmission Date: 20140515
  Serious: Yes (Other)
  Sender: FDA-Public Use
  Company Number: BR-PFIZER INC-2013257067

PATIENT
  Age: 57 Year
  Sex: Female
  Weight: 88 kg

DRUGS (3)
  1. CELEBRA [Suspect]
     Indication: PAIN
     Dosage: 200 MG, 2X/DAY (ONE CAPSULE, 2X/DAY)
     Route: 048
  2. LOSARTAN [Concomitant]
  3. ROXFLAN [Concomitant]

REACTIONS (3)
  - Road traffic accident [Unknown]
  - Fall [Unknown]
  - Meniscus injury [Unknown]
